FAERS Safety Report 7772312-5 (Version None)
Quarter: 2011Q3

REPORT INFORMATION
  Report Type: 
  Country: None (occurrence: None)
  Receive Date: 20110922
  Receipt Date: 20100809
  Transmission Date: 20111222
  Serious: No
  Sender: FDA-Public Use
  Company Number: US-ASTRAZENECA-2008UW04638

PATIENT
  Age: 21229 Day
  Sex: Female
  Weight: 61.2 kg

DRUGS (25)
  1. SEROQUEL [Suspect]
     Indication: DEPRESSION
     Dosage: 200-400 MG
     Route: 048
     Dates: start: 20040607
  2. RISPERDAL [Concomitant]
     Route: 065
  3. SEROQUEL [Suspect]
     Dosage: 200-400 MG
     Route: 048
     Dates: start: 20040901
  4. TEMAZEPAM [Concomitant]
     Dosage: STRENGTH 15,30 MG
     Route: 065
  5. GLIPIZIDE [Concomitant]
     Route: 065
  6. BUSPIRONE HCL [Concomitant]
     Route: 065
  7. SEROQUEL [Suspect]
     Dosage: 200-400 MG
     Route: 048
     Dates: start: 20040901
  8. SEROQUEL [Suspect]
     Dosage: 25- 200 MG
     Route: 048
     Dates: start: 20050906
  9. SEROQUEL [Suspect]
     Dosage: 25- 200 MG
     Route: 048
     Dates: start: 20050906
  10. CIPROFLOXACIN HCL [Concomitant]
     Route: 065
  11. ACTOS [Concomitant]
     Route: 065
  12. ZYPREXA [Concomitant]
     Indication: SLEEP DISORDER
     Dates: start: 20000422
  13. BUSPAL [Concomitant]
     Dates: start: 20000101
  14. SEROQUEL [Suspect]
     Indication: INSOMNIA
     Dosage: 200-400 MG
     Route: 048
     Dates: start: 20040607
  15. ALBUTEROL [Concomitant]
     Route: 065
  16. SYNTHROID [Concomitant]
     Route: 065
  17. TOPROL-XL [Concomitant]
     Route: 065
  18. SEROQUEL [Suspect]
     Indication: ANXIETY
     Dosage: 200-400 MG
     Route: 048
     Dates: start: 20040607
  19. SPIRIVA [Concomitant]
     Route: 065
  20. AMOXICILLIN [Concomitant]
     Route: 065
  21. ZOCOR [Concomitant]
     Route: 065
  22. SEROQUEL [Suspect]
     Dosage: 200-400 MG
     Route: 048
     Dates: start: 20040901
  23. SEROQUEL [Suspect]
     Dosage: 25- 200 MG
     Route: 048
     Dates: start: 20050906
  24. TRILEPTAL [Concomitant]
     Route: 065
  25. THORAZINE [Concomitant]
     Dates: start: 20020101

REACTIONS (4)
  - DIABETIC COMPLICATION [None]
  - TYPE 2 DIABETES MELLITUS [None]
  - BLOOD CHOLESTEROL INCREASED [None]
  - HYPERLIPIDAEMIA [None]
